FAERS Safety Report 6763233-5 (Version None)
Quarter: 2010Q2

REPORT INFORMATION
  Report Type: 
  Country: None (occurrence: None)
  Receive Date: 20100610
  Receipt Date: 20100527
  Transmission Date: 20101027
  Serious: Yes (Other)
  Sender: FDA-Public Use
  Company Number: US-ASTRAZENECA-2008UW11510

PATIENT
  Age: 462 Month
  Sex: Female
  Weight: 98.9 kg

DRUGS (3)
  1. SEROQUEL [Suspect]
     Indication: DEPRESSION
     Dosage: 100 TO 600 MG
     Route: 048
     Dates: start: 20030101, end: 20051001
  2. GEODON [Concomitant]
  3. PROZAC [Concomitant]
     Dates: start: 20041116

REACTIONS (2)
  - DIABETES MELLITUS [None]
  - NEUROPATHY PERIPHERAL [None]
